FAERS Safety Report 6287045-4 (Version None)
Quarter: 2009Q3

REPORT INFORMATION
  Report Type: 
  Country: None (occurrence: None)
  Receive Date: 20090727
  Receipt Date: 20090727
  Transmission Date: 20100115
  Serious: Yes (Disabling, Other)
  Sender: FDA-Public Use
  Company Number: None

PATIENT
  Sex: Male
  Weight: 72.5755 kg

DRUGS (2)
  1. SIMVASTATIN [Suspect]
     Indication: BLOOD CHOLESTEROL ABNORMAL
     Dosage: 40MG/ DAY
     Dates: start: 20050101, end: 20090101
  2. CYCLOBENZAPRINE HCL [Suspect]
     Indication: MUSCLE RELAXANT THERAPY
     Dosage: 4 PTO 30MG/DAY
     Dates: start: 20010101, end: 20090101

REACTIONS (4)
  - BLINDNESS [None]
  - ERECTILE DYSFUNCTION [None]
  - MUSCULAR WEAKNESS [None]
  - MYALGIA [None]
